FAERS Safety Report 4614222-8 (Version None)
Quarter: 2005Q1

REPORT INFORMATION
  Report Type: 
  Country: None (occurrence: None)
  Receive Date: 20050315
  Receipt Date: 20050225
  Transmission Date: 20050727
  Serious: Yes (Death, Hospitalization, Other)
  Sender: FDA-Public Use
  Company Number: USA050291872

PATIENT
  Age: 62 Year
  Sex: Female

DRUGS (14)
  1. CYMBALTA [Suspect]
     Indication: NEUROPATHIC PAIN
     Dosage: 180 MG/1 AT BEDTIME
     Dates: start: 20040920, end: 20050201
  2. OXYCODONE HCL [Concomitant]
  3. OXYCODONE [Concomitant]
  4. ACETAMINOPHEN [Concomitant]
  5. AVANDIA [Concomitant]
  6. PAXIL [Concomitant]
  7. NEURONTIN (GABAPENTIN PFIZER) [Concomitant]
  8. MS CONTIN [Concomitant]
  9. METOPROLOL SUCCINATE [Concomitant]
  10. INSULIN [Concomitant]
  11. PROTONIX [Concomitant]
  12. TEGRETOL - SLOW RELEASE (CARBAMAZEPINE RIVOPHARM) [Concomitant]
  13. NAPROSYN (NAPROXEN MEPHA) [Concomitant]
  14. MIRAPEX [Concomitant]

REACTIONS (38)
  - BLOOD BICARBONATE INCREASED [None]
  - BLOOD CHLORIDE DECREASED [None]
  - BLOOD CHOLESTEROL INCREASED [None]
  - BLOOD GLUCOSE DECREASED [None]
  - BLOOD PH DECREASED [None]
  - BLOOD POTASSIUM DECREASED [None]
  - BLOOD POTASSIUM INCREASED [None]
  - BLOOD TRIGLYCERIDES INCREASED [None]
  - BUNDLE BRANCH BLOCK LEFT [None]
  - CHROMATURIA [None]
  - CONCUSSION [None]
  - CONFUSIONAL STATE [None]
  - DEPRESSION [None]
  - DYSKINESIA [None]
  - ESCHERICHIA URINARY TRACT INFECTION [None]
  - FALL [None]
  - GLYCOSYLATED HAEMOGLOBIN INCREASED [None]
  - HEAD INJURY [None]
  - HEPATIC ENCEPHALOPATHY [None]
  - HEPATIC FAILURE [None]
  - HEPATITIS A ANTIBODY POSITIVE [None]
  - HYPERCAPNIA [None]
  - HYPOXIA [None]
  - LOW DENSITY LIPOPROTEIN INCREASED [None]
  - LUNG INFILTRATION [None]
  - MENTAL IMPAIRMENT [None]
  - MIOSIS [None]
  - PAIN [None]
  - PCO2 INCREASED [None]
  - PERIPHERAL VASCULAR DISORDER [None]
  - RENAL FAILURE [None]
  - SERUM FERRITIN INCREASED [None]
  - SKIN LACERATION [None]
  - SOMNOLENCE [None]
  - SYNCOPE [None]
  - TREMOR [None]
  - URINE OUTPUT DECREASED [None]
  - UROSEPSIS [None]
